FAERS Safety Report 9345869 (Version 1)
Quarter: 2013Q2

REPORT INFORMATION
  Report Type: Spontaneous
  Country: DE (occurrence: DE)
  Receive Date: 20130613
  Receipt Date: 20130613
  Transmission Date: 20140414
  Serious: Yes (Hospitalization)
  Sender: FDA-Public Use
  Company Number: DE-PFIZER INC-2013176024

PATIENT
  Age: 51 Year
  Sex: Male

DRUGS (1)
  1. DOSTINEX [Suspect]
     Dosage: 0.5 MG, 2X/WEEK
     Dates: start: 2001

REACTIONS (5)
  - Coma [Unknown]
  - Inguinal hernia [Unknown]
  - Abdominal wall disorder [Unknown]
  - Nasopharyngitis [Unknown]
  - Drug intolerance [Unknown]
